FAERS Safety Report 14457578 (Version 6)
Quarter: 2021Q1

REPORT INFORMATION
  Report Type: Spontaneous
  Country: US (occurrence: US)
  Receive Date: 20180130
  Receipt Date: 20210315
  Transmission Date: 20210419
  Serious: Yes (Other)
  Sender: FDA-Public Use
  Company Number: US-PFIZER INC-2018038875

PATIENT
  Age: 68 Year
  Sex: Female

DRUGS (1)
  1. XELJANZ [Suspect]
     Active Substance: TOFACITINIB CITRATE
     Dosage: 5 MG, UNK

REACTIONS (5)
  - Ankle fracture [Unknown]
  - Arthritis [Unknown]
  - Tibial torsion [Unknown]
  - Hypoacusis [Not Recovered/Not Resolved]
  - Diabetes mellitus [Not Recovered/Not Resolved]
